FAERS Safety Report 25899794 (Version 1)
Quarter: 2025Q4

REPORT INFORMATION
  Report Type: Spontaneous
  Country: EU (occurrence: EU)
  Receive Date: 20251009
  Receipt Date: 20251009
  Transmission Date: 20260117
  Serious: Yes (Hospitalization, Other)
  Sender: AMGEN
  Company Number: EU-AMGEN-FRASP2025194946

PATIENT
  Age: 28 Year
  Sex: Male
  Weight: 78 kg

DRUGS (1)
  1. XGEVA [Suspect]
     Active Substance: DENOSUMAB
     Indication: Product used for unknown indication
     Dosage: UNK UNK, Q2WK, (44 ADMINISTRATION)
     Route: 065
     Dates: start: 20101222, end: 201608

REACTIONS (17)
  - Corneal graft rejection [Unknown]
  - Osteonecrosis of jaw [Not Recovered/Not Resolved]
  - Pneumonia [Unknown]
  - Mixed anxiety and depressive disorder [Unknown]
  - Bone giant cell tumour [Unknown]
  - Sepsis [Unknown]
  - Mental disorder [Unknown]
  - Bacterial infection [Not Recovered/Not Resolved]
  - Folliculitis [Unknown]
  - Socioeconomic precarity [Unknown]
  - Mobility decreased [Not Recovered/Not Resolved]
  - Impaired quality of life [Unknown]
  - Tooth disorder [Unknown]
  - Eczema [Unknown]
  - Weight increased [Unknown]
  - Pain in extremity [Not Recovered/Not Resolved]
  - Headache [Unknown]

NARRATIVE: CASE EVENT DATE: 20120101
